FAERS Safety Report 12763365 (Version 1)
Quarter: 2016Q3

REPORT INFORMATION
  Report Type: Spontaneous
  Country: US (occurrence: US)
  Receive Date: 20160919
  Receipt Date: 20160919
  Transmission Date: 20161109
  Serious: Yes (Other)
  Sender: FDA-Public Use
  Company Number: None

PATIENT
  Age: 44 Year
  Sex: Female
  Weight: 45 kg

DRUGS (1)
  1. FORTEO [Suspect]
     Active Substance: TERIPARATIDE
     Indication: OSTEOPOROSIS
     Dosage: 11 MG/M 2 MILLIGRAMS(S)/SQ. METER DAILY OTHER
     Dates: start: 20160908

REACTIONS (2)
  - Movement disorder [None]
  - Bone pain [None]

NARRATIVE: CASE EVENT DATE: 20160909
